FAERS Safety Report 4389175-0 (Version None)
Quarter: 2004Q2

REPORT INFORMATION
  Report Type: 
  Country: None (occurrence: None)
  Receive Date: 20040630
  Receipt Date: 20040618
  Transmission Date: 20050107
  Serious: Yes (Other)
  Sender: FDA-Public Use
  Company Number: 200410462BCA

PATIENT
  Age: 81 Year
  Sex: Female

DRUGS (6)
  1. ASPIRIN [Suspect]
     Dosage: 325 MG, TOTAL DAILY, ORAL
     Route: 048
  2. AGGRASTAT [Suspect]
     Dosage: INTRAVENOUS
     Route: 042
  3. HEPARIN [Suspect]
     Dosage: INTRAVENOUS
     Route: 042
  4. PLAVIX [Suspect]
     Dosage: 75 MG, TOTAL DAILY, ORAL
     Route: 048
  5. METOPROLOL [Concomitant]
  6. NITROGLYCERIN [Concomitant]

REACTIONS (1)
  - HAEMOGLOBIN DECREASED [None]
